FAERS Safety Report 5877020-3 (Version None)
Quarter: 2008Q3

REPORT INFORMATION
  Report Type: 
  Country: None (occurrence: None)
  Receive Date: 20080910
  Receipt Date: 20080902
  Transmission Date: 20090109
  Serious: Yes (Hospitalization)
  Sender: FDA-Public Use
  Company Number: PHEH2008US05454

PATIENT
  Sex: Female
  Weight: 79.365 kg

DRUGS (2)
  1. RECLAST [Suspect]
     Indication: OSTEOPOROSIS POSTMENOPAUSAL
     Dosage: 5 MG, ONCE/SINGLE
     Route: 042
     Dates: start: 20080606, end: 20080606
  2. CALCIUM WITH VITAMIN D [Concomitant]

REACTIONS (5)
  - FATIGUE [None]
  - HYPOAESTHESIA [None]
  - HYPOCALCAEMIA [None]
  - PARAESTHESIA [None]
  - PARATHYROID DISORDER [None]
